FAERS Safety Report 11362843 (Version 1)
Quarter: 2015Q3

REPORT INFORMATION
  Report Type: Spontaneous
  Country: US (occurrence: None)
  Receive Date: 20150807
  Receipt Date: 20150807
  Transmission Date: 20151125
  Serious: Yes (Other)
  Sender: FDA-Public Use
  Company Number: US-JNJFOC-20131000365

PATIENT
  Age: 51 Year
  Sex: Female
  Weight: 72.58 kg

DRUGS (1)
  1. LISTERINE POCKETMIST [Suspect]
     Active Substance: EUCALYPTOL\MENTHOL\THYMOL
     Indication: BREATH ODOUR
     Route: 048
     Dates: start: 20130929, end: 20130929

REACTIONS (5)
  - Choking [None]
  - Drug ineffective [None]
  - Device breakage [None]
  - Device issue [None]
  - Foreign body [None]

NARRATIVE: CASE EVENT DATE: 20130929
